FAERS Safety Report 7038447-X (Version None)
Quarter: 2010Q4

REPORT INFORMATION
  Report Type: 
  Country: None (occurrence: None)
  Receive Date: 20101011
  Receipt Date: 20100319
  Transmission Date: 20110411
  Serious: No
  Sender: FDA-Public Use
  Company Number: US-PFIZER INC-2010036691

PATIENT
  Sex: Female
  Weight: 131.52 kg

DRUGS (14)
  1. NEURONTIN [Suspect]
     Indication: DIABETIC NEUROPATHY
     Dosage: 400 MG, 1X/DAY
     Route: 048
     Dates: start: 20080101, end: 20100324
  2. NEURONTIN [Suspect]
     Dosage: 100 MG, 1X/DAY
     Dates: start: 20080101
  3. NEURONTIN [Suspect]
     Dosage: 200 MG, 1X/DAY
     Dates: start: 20080101
  4. METFORMIN [Concomitant]
     Indication: DIABETES MELLITUS
     Dosage: UNK
  5. ACTOS [Concomitant]
     Indication: DIABETES MELLITUS
     Dosage: UNK
  6. GLIPIZIDE [Concomitant]
     Indication: DIABETES MELLITUS
     Dosage: UNK
  7. ETODOLAC [Concomitant]
     Indication: MUSCULOSKELETAL DISCOMFORT
     Dosage: UNK
  8. ETODOLAC [Concomitant]
     Indication: ARTHRALGIA
  9. CRESTOR [Concomitant]
     Indication: BLOOD CHOLESTEROL INCREASED
     Dosage: UNK
  10. LISINOPRIL [Concomitant]
     Indication: HYPERTENSION
     Dosage: UNK
  11. TOPROL-XL [Concomitant]
     Indication: HYPERTENSION
     Dosage: UNK
  12. NEXIUM [Concomitant]
     Indication: GASTROOESOPHAGEAL REFLUX DISEASE
     Dosage: UNK
  13. HYDROCHLOROTHIAZIDE [Concomitant]
     Indication: FLUID RETENTION
     Dosage: UNK
  14. HYDROCHLOROTHIAZIDE [Concomitant]
     Indication: HYPERTENSION

REACTIONS (2)
  - DRUG INEFFECTIVE [None]
  - PAIN IN EXTREMITY [None]
